FAERS Safety Report 13298950 (Version 2)
Quarter: 2017Q2

REPORT INFORMATION
  Report Type: Report from Study
  Country: JP (occurrence: JP)
  Receive Date: 20170306
  Receipt Date: 20170421
  Transmission Date: 20170830
  Serious: Yes (Other)
  Sender: FDA-Public Use
  Company Number: JP-JNJFOC-20170302871

PATIENT
  Age: 89 Year
  Sex: Female
  Weight: 42.1 kg

DRUGS (11)
  1. XARELTO [Suspect]
     Active Substance: RIVAROXABAN
     Indication: EMBOLISM VENOUS
     Route: 048
     Dates: start: 20160820, end: 20160828
  2. XARELTO [Suspect]
     Active Substance: RIVAROXABAN
     Indication: EMBOLISM VENOUS
     Route: 048
     Dates: start: 20160829, end: 20170118
  3. LASIX [Concomitant]
     Active Substance: FUROSEMIDE
     Route: 048
  4. ALOSENN [Concomitant]
     Active Substance: SENNA LEAF
     Route: 048
  5. TRIAZOLAM. [Concomitant]
     Active Substance: TRIAZOLAM
     Route: 048
  6. ARICEPT [Concomitant]
     Active Substance: DONEPEZIL HYDROCHLORIDE
     Route: 048
  7. ALDACTONE A [Concomitant]
     Active Substance: SPIRONOLACTONE
     Route: 048
  8. AVAPRO [Concomitant]
     Active Substance: IRBESARTAN
     Route: 048
  9. NEXIUM [Concomitant]
     Active Substance: ESOMEPRAZOLE MAGNESIUM
     Route: 048
  10. ISOSORBIDE MONONITRATE. [Concomitant]
     Active Substance: ISOSORBIDE MONONITRATE
     Route: 048
  11. POSTERISAN [Concomitant]
     Active Substance: LIDOCAINE
     Route: 061

REACTIONS (1)
  - Anaemia [Unknown]

NARRATIVE: CASE EVENT DATE: 20170118
